FAERS Safety Report 7338140-X (Version None)
Quarter: 2011Q1

REPORT INFORMATION
  Report Type: 
  Country: None (occurrence: None)
  Receive Date: 20110308
  Receipt Date: 20110225
  Transmission Date: 20110831
  Serious: Yes (Hospitalization)
  Sender: FDA-Public Use
  Company Number: US-BAXTER-2010BH030573

PATIENT
  Age: 15 Month
  Sex: Male
  Weight: 10 kg

DRUGS (4)
  1. FEIBA VH [Suspect]
     Route: 042
     Dates: start: 20101130
  2. LIDOCAINE [Concomitant]
     Route: 061
     Dates: start: 20101207
  3. AMICAR [Concomitant]
     Indication: MUCOSAL HAEMORRHAGE
     Route: 048
     Dates: start: 20100526
  4. FEIBA VH [Suspect]
     Indication: HAEMOSTASIS
     Route: 042
     Dates: start: 20101217

REACTIONS (5)
  - SCREAMING [None]
  - CATHETER SITE HAEMORRHAGE [None]
  - FACTOR VIII INHIBITION [None]
  - CATHETER SITE HAEMATOMA [None]
  - INFUSION SITE SWELLING [None]
